FAERS Safety Report 6340594-2 (Version None)
Quarter: 2009Q3

REPORT INFORMATION
  Report Type: 
  Country: None (occurrence: None)
  Receive Date: 20090902
  Receipt Date: 20090902
  Transmission Date: 20100115
  Serious: Yes (Other)
  Sender: FDA-Public Use
  Company Number: None

PATIENT
  Age: 81 Year
  Sex: Female

DRUGS (8)
  1. AMIODARONE HCL [Suspect]
     Dosage: 200MG PER DAY
     Dates: start: 20090624
  2. PLAVIX [Concomitant]
  3. SYNTHROID [Concomitant]
  4. METOPROLOL [Concomitant]
  5. SERTRALINE HCL [Concomitant]
  6. CELEBREX [Concomitant]
  7. AMLODIPINE [Concomitant]
  8. SPIRONOLACTONE [Concomitant]

REACTIONS (1)
  - LUNG DISORDER [None]
